FAERS Safety Report 7305018-7 (Version None)
Quarter: 2011Q1

REPORT INFORMATION
  Report Type: 
  Country: None (occurrence: None)
  Receive Date: 20110222
  Receipt Date: 20110210
  Transmission Date: 20110831
  Serious: Yes (Hospitalization, Other)
  Sender: FDA-Public Use
  Company Number: US-CELGENEUS-163-C5013-11011195

PATIENT
  Sex: Female
  Weight: 57.4 kg

DRUGS (18)
  1. PROCHLORPERAZINE [Concomitant]
     Indication: NAUSEA
     Route: 048
     Dates: start: 20101216
  2. COLACE [Concomitant]
     Indication: CONSTIPATION
     Route: 048
     Dates: start: 20100907
  3. OXYCODONE [Concomitant]
     Indication: PAIN
     Route: 048
     Dates: start: 20100816
  4. FERROUS SULFATE TAB [Concomitant]
     Indication: SUPPLEMENTATION THERAPY
     Route: 048
     Dates: start: 20100806
  5. DIPHENHYDRAMINE [Concomitant]
     Route: 051
  6. ONDANSETRON [Concomitant]
     Route: 051
  7. CC-5013 [Suspect]
     Route: 048
     Dates: start: 20101216, end: 20110106
  8. SUNITINIB [Suspect]
     Route: 065
     Dates: start: 20101216, end: 20110106
  9. DIPHENHYDRAMINE [Concomitant]
     Route: 051
     Dates: start: 20110112
  10. ONDANSETRON [Concomitant]
     Indication: NAUSEA
     Route: 048
     Dates: start: 20110106
  11. LISINOPRIL AND HYDROCHLOROTHIAZIDE [Concomitant]
     Dosage: 20/125MG
     Route: 048
     Dates: start: 20110116
  12. CALTRATE 600 [Concomitant]
     Indication: SUPPLEMENTATION THERAPY
     Route: 048
     Dates: start: 20100806
  13. ROBITUSSIN OTC [Concomitant]
     Indication: COUGH
     Route: 048
     Dates: start: 20101209
  14. LISINOPRIL AND HYDROCHLOROTHIAZIDE [Concomitant]
     Indication: HYPERTENSION
     Dosage: 20/125MG HALF TAB
     Route: 048
     Dates: start: 20100806, end: 20110106
  15. SENNA [Concomitant]
     Indication: CONSTIPATION
     Route: 048
     Dates: start: 20100901
  16. IMMODIUM OTC [Concomitant]
     Route: 048
  17. DIPHENHYDRAMINE [Concomitant]
     Indication: RASH
     Dosage: 2%
     Route: 061
     Dates: start: 20110106
  18. VICODIN [Concomitant]
     Indication: PAIN
     Dosage: 5/500MG
     Route: 048
     Dates: start: 20100806, end: 20101216

REACTIONS (8)
  - DIARRHOEA [None]
  - NAUSEA [None]
  - HYPERSENSITIVITY [None]
  - STOMATITIS [None]
  - FATIGUE [None]
  - FACE OEDEMA [None]
  - VOMITING [None]
  - RASH [None]
